FAERS Safety Report 16374843 (Version 2)
Quarter: 2021Q2

REPORT INFORMATION
  Report Type: Report from Study
  Country: None (occurrence: AR)
  Receive Date: 20190530
  Receipt Date: 20210513
  Transmission Date: 20210716
  Serious: Yes (Other)
  Sender: FDA-Public Use
  Company Number: AR-ABBVIE-19K-007-2802093-00

PATIENT
  Sex: Female

DRUGS (1)
  1. HUMIRA [Suspect]
     Active Substance: ADALIMUMAB
     Indication: PSORIATIC ARTHROPATHY
     Route: 058
     Dates: start: 20141015

REACTIONS (10)
  - Arthralgia [Not Recovered/Not Resolved]
  - Oesophageal injury [Recovering/Resolving]
  - Psoriatic arthropathy [Unknown]
  - Drug ineffective [Not Recovered/Not Resolved]
  - Skin injury [Recovering/Resolving]
  - Mouth injury [Recovering/Resolving]
  - Skin disorder [Not Recovered/Not Resolved]
  - Conjunctivitis [Recovering/Resolving]
  - Blood disorder [Not Recovered/Not Resolved]
  - Glaucoma [Not Recovered/Not Resolved]

NARRATIVE: CASE EVENT DATE: 2019
